FAERS Safety Report 7098774-7 (Version None)
Quarter: 2010Q4

REPORT INFORMATION
  Report Type: 
  Country: None (occurrence: None)
  Receive Date: 20101112
  Receipt Date: 20101105
  Transmission Date: 20110411
  Serious: Yes (Hospitalization, Other)
  Sender: FDA-Public Use
  Company Number: US-AMGEN-USASP2010003818

PATIENT

DRUGS (1)
  1. ENBREL [Suspect]
     Indication: RHEUMATOID ARTHRITIS
     Dates: start: 20021201, end: 20100301

REACTIONS (5)
  - BLADDER CANCER [None]
  - CONDITION AGGRAVATED [None]
  - POST PROCEDURAL INFECTION [None]
  - PROSTATECTOMY [None]
  - RHEUMATOID ARTHRITIS [None]
